FAERS Safety Report 18811879 (Version 1)
Quarter: 2021Q1

REPORT INFORMATION
  Report Type: Spontaneous
  Country: CN (occurrence: CN)
  Receive Date: 20210129
  Receipt Date: 20210129
  Transmission Date: 20210419
  Serious: Yes (Other)
  Sender: FDA-Public Use
  Company Number: CN-PFIZER INC-2021082038

PATIENT
  Age: 9 Year
  Sex: Female
  Weight: 32 kg

DRUGS (9)
  1. CYTOSAR [Suspect]
     Active Substance: CYTARABINE
     Dosage: 2.260 G, 2X/DAY
     Route: 041
     Dates: start: 20210102, end: 20210104
  2. GLUCOSE [Suspect]
     Active Substance: DEXTROSE
     Indication: ACUTE LYMPHOCYTIC LEUKAEMIA
     Dosage: 250.000 ML, 2X/DAY
     Route: 041
     Dates: start: 20210102, end: 20210104
  3. SODIUM CHLORIDE. [Suspect]
     Active Substance: SODIUM CHLORIDE
     Indication: ACUTE LYMPHOCYTIC LEUKAEMIA
     Dosage: 3.000 ML, 1X/DAY
     Route: 037
     Dates: start: 20210102, end: 20210102
  4. DEXAMETHASONE SODIUM PHOSPHATE. [Suspect]
     Active Substance: DEXAMETHASONE SODIUM PHOSPHATE
     Indication: ACUTE LYMPHOCYTIC LEUKAEMIA
     Dosage: 2.500 MG, 1X/DAY
     Route: 037
     Dates: start: 20210102, end: 20210102
  5. SODIUM CHLORIDE. [Suspect]
     Active Substance: SODIUM CHLORIDE
     Dosage: 10.000 ML, 1X/DAY
     Route: 042
     Dates: start: 20210102, end: 20210102
  6. CYTOSAR [Suspect]
     Active Substance: CYTARABINE
     Indication: ACUTE LYMPHOCYTIC LEUKAEMIA
     Dosage: 0.035 G, 1X/DAY
     Route: 037
     Dates: start: 20210102, end: 20210102
  7. PEGASPARGASE [Suspect]
     Active Substance: PEGASPARGASE
     Indication: ACUTE LYMPHOCYTIC LEUKAEMIA
     Dosage: 2260.000 IU, 1X/DAY
     Route: 030
     Dates: start: 20210102, end: 20210102
  8. VINCRISTINE SULFATE. [Suspect]
     Active Substance: VINCRISTINE SULFATE
     Indication: ACUTE LYMPHOCYTIC LEUKAEMIA
     Dosage: 1.700 MG, 1X/DAY
     Route: 042
     Dates: start: 20210102, end: 20210102
  9. METHOTREXATE. [Suspect]
     Active Substance: METHOTREXATE
     Indication: ACUTE LYMPHOCYTIC LEUKAEMIA
     Dosage: 12.500 MG, 1X/DAY
     Route: 037
     Dates: start: 20210102, end: 20210102

REACTIONS (1)
  - Myelosuppression [Recovering/Resolving]

NARRATIVE: CASE EVENT DATE: 20210111
